FAERS Safety Report 9808657 (Version 1)
Quarter: 2014Q1

REPORT INFORMATION
  Report Type: Report from Study
  Country: US (occurrence: US)
  Receive Date: 20140110
  Receipt Date: 20140110
  Transmission Date: 20141002
  Serious: Yes (Death, Hospitalization, Other)
  Sender: FDA-Public Use
  Company Number: US-TEVA-454660USA

PATIENT
  Sex: Male

DRUGS (2)
  1. DAUNORUBICIN [Suspect]
     Indication: ACUTE MYELOID LEUKAEMIA
     Dosage: 60MG/M2 IV DAYS 1-3
     Route: 042
     Dates: start: 20110519, end: 20110521
  2. CYTARABINE [Suspect]
     Indication: ACUTE MYELOID LEUKAEMIA
     Dosage: 100MG/M2. IV DAUS 1-7
     Route: 042
     Dates: start: 20110519, end: 20110526

REACTIONS (3)
  - Multi-organ failure [Fatal]
  - Sepsis [Unknown]
  - Cerebrovascular accident [Unknown]
